FAERS Safety Report 8888992 (Version 1)
Quarter: 2012Q4

REPORT INFORMATION
  Report Type: 
  Country: US (occurrence: US)
  Receive Date: 20121106
  Receipt Date: 20121106
  Transmission Date: 20130627
  Serious: Yes (Hospitalization)
  Sender: FDA-Public Use
  Company Number: US-ROCHE-1139901

PATIENT
  Sex: Male

DRUGS (4)
  1. PROTROPIN [Suspect]
     Indication: DWARFISM
     Dosage: dilute with 2 cc
     Route: 058
     Dates: start: 199506
  2. PROTROPIN [Suspect]
     Indication: HYPOPITUITARISM
  3. SYNTHROID [Concomitant]
     Route: 065
  4. CORTEF [Concomitant]
     Route: 065

REACTIONS (2)
  - Asthma [Unknown]
  - Pneumonia [Unknown]
